FAERS Safety Report 19773265 (Version 3)
Quarter: 2022Q1

REPORT INFORMATION
  Report Type: Spontaneous
  Country: IN (occurrence: IN)
  Receive Date: 20210901
  Receipt Date: 20220322
  Transmission Date: 20220423
  Serious: Yes (Death, Other)
  Sender: FDA-Public Use
  Company Number: IN-PFIZER INC-2018379276

PATIENT
  Age: 60 Year
  Sex: Male

DRUGS (2)
  1. INLYTA [Suspect]
     Active Substance: AXITINIB
     Indication: Metastatic renal cell carcinoma
     Dosage: 5 MG, 2X/DAY
     Route: 048
     Dates: start: 20180525, end: 202105
  2. IDROMET [Concomitant]
     Dosage: 6 MG, CYCLIC (DAY 1, REPEAT EVERY MONTH FOR 3 MONTHS)
     Route: 041

REACTIONS (9)
  - Death [Fatal]
  - Osteomyelitis acute [Unknown]
  - Hypertension [Unknown]
  - Somnolence [Unknown]
  - Cardiac disorder [Unknown]
  - Back pain [Unknown]
  - Pain in extremity [Unknown]
  - Gait disturbance [Unknown]
  - Neoplasm progression [Unknown]
